FAERS Safety Report 20545729 (Version 2)
Quarter: 2022Q2

REPORT INFORMATION
  Report Type: Spontaneous
  Country: US (occurrence: None)
  Receive Date: 20220303
  Receipt Date: 20220414
  Transmission Date: 20220721
  Serious: No
  Sender: FDA-Public Use
  Company Number: 2022A083985

PATIENT
  Age: 13 Year
  Sex: Male
  Weight: 33.8 kg

DRUGS (1)
  1. EVUSHELD [Suspect]
     Active Substance: CILGAVIMAB\TIXAGEVIMAB
     Indication: Immunodeficiency
     Dosage: 150 MG OF TIXAGEVIMAB AND 150 MG OF CILGAVIMAB INTRAGLUTEAL
     Route: 030
     Dates: start: 20220222

REACTIONS (2)
  - Product administration error [Unknown]
  - Product use issue [Unknown]

NARRATIVE: CASE EVENT DATE: 20220222
